FAERS Safety Report 14773544 (Version 1)
Quarter: 2018Q2

REPORT INFORMATION
  Report Type: Spontaneous
  Country: US (occurrence: US)
  Receive Date: 20180411
  Receipt Date: 20180411
  Transmission Date: 20180711
  Serious: Yes (Death)
  Sender: FDA-Public Use
  Company Number: None

PATIENT
  Age: 48 Year
  Sex: Male

DRUGS (13)
  1. LONSURF [Suspect]
     Active Substance: TIPIRACIL HYDROCHLORIDE\TRIFLURIDINE
     Indication: COLON CANCER
     Dosage: 60MG QD DAYS 1-5 / 8-12 PO
     Route: 048
     Dates: start: 20180220, end: 201804
  2. AMOX/K CLAV [Concomitant]
     Active Substance: AMOXICILLIN\CLAVULANATE POTASSIUM
  3. PROCHLORPER [Concomitant]
  4. CHLORPROMAZ [Concomitant]
  5. BACLOFEN. [Concomitant]
     Active Substance: BACLOFEN
  6. MORPHINE SUL [Concomitant]
     Active Substance: MORPHINE SULFATE
  7. PREVACID [Concomitant]
     Active Substance: LANSOPRAZOLE
  8. AMLODIPINE [Concomitant]
     Active Substance: AMLODIPINE BESYLATE
  9. POT CHLORIDE [Concomitant]
     Active Substance: POTASSIUM CHLORIDE
  10. RELISTOR [Concomitant]
     Active Substance: METHYLNALTREXONE BROMIDE
  11. METOCLOPRAM [Concomitant]
     Active Substance: METOCLOPRAMIDE
  12. FLUCONAZOLE. [Concomitant]
     Active Substance: FLUCONAZOLE
  13. LOPERAMIDE [Concomitant]
     Active Substance: LOPERAMIDE

REACTIONS (1)
  - Death [None]

NARRATIVE: CASE EVENT DATE: 2018
